FAERS Safety Report 19857688 (Version 1)
Quarter: 2021Q3

REPORT INFORMATION
  Report Type: Spontaneous
  Country: US (occurrence: US)
  Receive Date: 20210920
  Receipt Date: 20210920
  Transmission Date: 20211014
  Serious: Yes (Other)
  Sender: FDA-Public Use
  Company Number: US-HIKMA PHARMACEUTICALS USA INC.-US-H14001-21-04012

PATIENT
  Age: 56 Year
  Sex: Male

DRUGS (7)
  1. TACROLIMUS. [Suspect]
     Active Substance: TACROLIMUS
     Dosage: 7 ? 9 NG/ML , DOSE INCREASE
     Route: 065
  2. TACROLIMUS. [Suspect]
     Active Substance: TACROLIMUS
     Indication: IMMUNOSUPPRESSION
     Dosage: 8 ? 10 NG/ML
     Route: 065
  3. MYCOPHENOLATE MOFETIL. [Suspect]
     Active Substance: MYCOPHENOLATE MOFETIL
     Route: 065
  4. PREDNISONE. [Suspect]
     Active Substance: PREDNISONE
     Indication: IMMUNOSUPPRESSION
     Dosage: UNKNOWN
     Route: 065
  5. MYCOPHENOLATE MOFETIL. [Suspect]
     Active Substance: MYCOPHENOLATE MOFETIL
     Indication: IMMUNOSUPPRESSION
     Dosage: UNKNOWN
     Route: 065
  6. TACROLIMUS. [Suspect]
     Active Substance: TACROLIMUS
     Dosage: 5 ? 6 NG/ML, DOSE REDUCTION
     Route: 065
  7. RABBIT ANTI ? THYMOCYTE GLOBULIN [Concomitant]
     Route: 065

REACTIONS (7)
  - Urinary tract infection [Unknown]
  - Nephritis [Unknown]
  - Prostatitis [Unknown]
  - Polyomavirus-associated nephropathy [Unknown]
  - Urinary retention [Unknown]
  - Polyomavirus viraemia [Recovered/Resolved]
  - Cytomegalovirus infection [Recovered/Resolved]
